FAERS Safety Report 8122330-2 (Version None)
Quarter: 2012Q1

REPORT INFORMATION
  Report Type: 
  Country: None (occurrence: None)
  Receive Date: 20120208
  Receipt Date: 20120131
  Transmission Date: 20120608
  Serious: Yes (Hospitalization, Other)
  Sender: FDA-Public Use
  Company Number: US-BAYER-2011-055491

PATIENT
  Age: 32 Year
  Sex: Female
  Weight: 52 kg

DRUGS (5)
  1. ADDERALL 5 [Concomitant]
     Dosage: UNK
     Route: 048
     Dates: start: 20050101, end: 20110101
  2. NAPROXEN (ALEVE) [Concomitant]
     Route: 048
  3. YAZ [Suspect]
  4. YAZ [Suspect]
     Indication: ACNE
     Dosage: UNK
     Dates: start: 20071101, end: 20100701
  5. YAZ [Suspect]
     Indication: PREMENSTRUAL SYNDROME

REACTIONS (9)
  - MIGRAINE [None]
  - DEPRESSION [None]
  - GALLBLADDER DISORDER [None]
  - CHOLECYSTITIS CHRONIC [None]
  - ANXIETY [None]
  - INJURY [None]
  - ATTENTION DEFICIT/HYPERACTIVITY DISORDER [None]
  - PANIC ATTACK [None]
  - PAIN [None]
